FAERS Safety Report 10444032 (Version 1)
Quarter: 2014Q3

REPORT INFORMATION
  Report Type: Spontaneous
  Country: US (occurrence: None)
  Receive Date: 20140909
  Receipt Date: 20140909
  Transmission Date: 20150326
  Serious: Yes (Hospitalization)
  Sender: FDA-Public Use
  Company Number: None

PATIENT
  Age: 67 Year
  Sex: Male
  Weight: 92.3 kg

DRUGS (1)
  1. ZOLEDRONIC [Suspect]
     Active Substance: ZOLEDRONIC ACID
     Indication: OSTEOPOROSIS
     Dosage: 5 MG ONCE IV
     Route: 042
     Dates: start: 20140617, end: 20140617

REACTIONS (3)
  - Myalgia [None]
  - Pyrexia [None]
  - Chills [None]

NARRATIVE: CASE EVENT DATE: 20140617
